FAERS Safety Report 14868534 (Version 1)
Quarter: 2018Q2

REPORT INFORMATION
  Report Type: Spontaneous
  Country: US (occurrence: US)
  Receive Date: 20180509
  Receipt Date: 20180509
  Transmission Date: 20180711
  Serious: No
  Sender: FDA-Public Use
  Company Number: US-009507513-1804USA008517

PATIENT
  Age: 31 Year
  Sex: Female
  Weight: 124.72 kg

DRUGS (1)
  1. NEXPLANON [Suspect]
     Active Substance: ETONOGESTREL
     Dosage: 1 DF, ONCE EVERY 3 YEARS, LEFT UPPER ARM
     Route: 059
     Dates: start: 20160614, end: 20180406

REACTIONS (3)
  - Device kink [Recovered/Resolved]
  - No adverse event [Unknown]
  - Device breakage [Recovered/Resolved]

NARRATIVE: CASE EVENT DATE: 20180406
